FAERS Safety Report 4492381-8 (Version None)
Quarter: 2004Q4

REPORT INFORMATION
  Report Type: 
  Country: None (occurrence: None)
  Receive Date: 20041102
  Receipt Date: 20041102
  Transmission Date: 20050328
  Serious: Yes (Hospitalization)
  Sender: FDA-Public Use
  Company Number: None

PATIENT
  Age: 64 Year
  Sex: Female

DRUGS (1)
  1. INVANZ [Suspect]
     Indication: CELLULITIS
     Dosage: 1 G IV QD
     Route: 042
     Dates: start: 20040331, end: 20040405

REACTIONS (2)
  - GASTROENTERITIS [None]
  - MENTAL STATUS CHANGES [None]
